FAERS Safety Report 15295383 (Version 1)
Quarter: 2018Q4

REPORT INFORMATION
  Report Type: Spontaneous
  Country: ES (occurrence: ES)
  Receive Date: 20180820
  Receipt Date: 20180820
  Transmission Date: 20190204
  Serious: Yes (Hospitalization)
  Sender: FDA-Public Use
  Company Number: PHHY2018ES071708

PATIENT
  Age: 2 Year
  Sex: Female
  Weight: 11 kg

DRUGS (6)
  1. VINCRISTINA SULFATO [Interacting]
     Active Substance: VINCRISTINE SULFATE
     Indication: ACUTE LEUKAEMIA
     Dosage: 0.7 MG, CYCLIC
     Route: 042
     Dates: start: 20170315, end: 20170405
  2. METHOTREXATE. [Suspect]
     Active Substance: METHOTREXATE
     Indication: ACUTE LEUKAEMIA
     Dosage: 10 MG, QD
     Route: 042
     Dates: start: 20150315, end: 20170403
  3. DOXORUBICINA [Interacting]
     Active Substance: DOXORUBICIN HYDROCHLORIDE
     Indication: ACUTE LEUKAEMIA
     Dosage: 14 MG, CYCLIC
     Route: 042
     Dates: start: 20170315, end: 20170405
  4. DEXAMETASONA [Interacting]
     Active Substance: DEXAMETHASONE
     Indication: ACUTE LEUKAEMIA
     Dosage: 5 MG, QD
     Route: 042
     Dates: start: 20170315, end: 20170405
  5. ASPARAGINE MONOHYDRATE [Interacting]
     Active Substance: ASPARAGINE
     Indication: ACUTE LEUKAEMIA
     Dosage: 470 IU, CYCLIC
     Route: 042
     Dates: start: 20170315, end: 20170405
  6. CITARABINA [Interacting]
     Active Substance: CYTARABINE
     Indication: ACUTE LEUKAEMIA
     Dosage: 20 MG, QD
     Route: 042
     Dates: start: 20170315, end: 20170403

REACTIONS (2)
  - Metapneumovirus infection [Recovered/Resolved]
  - Hyperglycaemia [Recovered/Resolved]

NARRATIVE: CASE EVENT DATE: 20170322
